FAERS Safety Report 6327962-X (Version None)
Quarter: 2009Q3

REPORT INFORMATION
  Report Type: 
  Country: None (occurrence: None)
  Receive Date: 20090824
  Receipt Date: 20090806
  Transmission Date: 20100115
  Serious: Yes (Hospitalization)
  Sender: FDA-Public Use
  Company Number: DSA_40591_2009

PATIENT
  Age: 90 Year
  Sex: Male

DRUGS (12)
  1. HERBESSER (SLOW RELEASE DILTIAZEM HYDROCHLORIDE) (NOT SPECIFIED) [Suspect]
     Indication: DRUG USE FOR UNKNOWN INDICATION
     Dosage: (60 MG QD ORAL)
     Route: 048
  2. DIGOXIN [Suspect]
     Indication: DRUG USE FOR UNKNOWN INDICATION
     Dosage: (0.25 MG QD), (0.125 MG QD)
  3. ALLOPURINOL [Concomitant]
  4. NICORANDIL [Concomitant]
  5. NIFEDIPINE [Concomitant]
  6. CLOTIAZEPAM [Concomitant]
  7. VALPROATE SODIUM [Concomitant]
  8. DIPYRIDAMOLE [Concomitant]
  9. MOSAPRIDE CITRATE [Concomitant]
  10. DOMPERIDONE [Concomitant]
  11. GEFARNATE [Concomitant]
  12. FUROSEMIDE [Concomitant]

REACTIONS (10)
  - BLOOD CREATININE INCREASED [None]
  - BLOOD POTASSIUM INCREASED [None]
  - CONDITION AGGRAVATED [None]
  - DECREASED APPETITE [None]
  - DRUG INTERACTION [None]
  - DRUG TOXICITY [None]
  - NAUSEA [None]
  - RENAL IMPAIRMENT [None]
  - VISION BLURRED [None]
  - VOMITING [None]
